FAERS Safety Report 6412365-X (Version None)
Quarter: 2009Q4

REPORT INFORMATION
  Report Type: 
  Country: None (occurrence: None)
  Receive Date: 20091020
  Receipt Date: 20091007
  Transmission Date: 20100525
  Serious: Yes (Hospitalization)
  Sender: FDA-Public Use
  Company Number: 2009AC000119

PATIENT
  Sex: Male

DRUGS (1)
  1. DIGOXIN [Suspect]
     Dosage: 0.125 MG; BID; PO
     Route: 048

REACTIONS (4)
  - DYSPNOEA [None]
  - HEART RATE DECREASED [None]
  - HYPOTENSION [None]
  - PULSE ABSENT [None]
